FAERS Safety Report 17362275 (Version 1)
Quarter: 2020Q1

REPORT INFORMATION
  Report Type: Spontaneous
  Country: FR (occurrence: FR)
  Receive Date: 20200203
  Receipt Date: 20200203
  Transmission Date: 20200409
  Serious: Yes (Other)
  Sender: FDA-Public Use
  Company Number: FR-ABBVIE-18K-056-3121069-00

PATIENT
  Age: 51 Year
  Sex: Male
  Weight: 90.5 kg

DRUGS (1)
  1. IMBRUVICA [Suspect]
     Active Substance: IBRUTINIB
     Indication: CHRONIC LYMPHOCYTIC LEUKAEMIA
     Route: 048
     Dates: start: 20180801

REACTIONS (13)
  - Skin lesion [Not Recovered/Not Resolved]
  - Asthenia [Unknown]
  - Staphylococcal skin infection [Not Recovered/Not Resolved]
  - Faeces discoloured [Recovered/Resolved]
  - Dyshidrotic eczema [Not Recovered/Not Resolved]
  - Cough [Recovering/Resolving]
  - Blister [Not Recovered/Not Resolved]
  - Chromaturia [Recovered/Resolved]
  - Folliculitis [Not Recovered/Not Resolved]
  - Erectile dysfunction [Unknown]
  - Rhinorrhoea [Recovering/Resolving]
  - Arthralgia [Unknown]
  - Muscle spasms [Unknown]

NARRATIVE: CASE EVENT DATE: 201808
